FAERS Safety Report 4485696-0 (Version None)
Quarter: 2004Q4

REPORT INFORMATION
  Report Type: 
  Country: None (occurrence: None)
  Receive Date: 20041026
  Receipt Date: 20041013
  Transmission Date: 20050328
  Serious: Yes (Disabling)
  Sender: FDA-Public Use
  Company Number: US-GLAXOSMITHKLINE-A0530491A

PATIENT
  Age: 34 Year
  Sex: Male

DRUGS (3)
  1. PAXIL [Suspect]
     Indication: DEPRESSION
     Dosage: 30MG PER DAY
     Route: 048
     Dates: end: 20020601
  2. COCAINE [Suspect]
  3. XANAX [Concomitant]
     Indication: DEPRESSION

REACTIONS (9)
  - ANXIETY [None]
  - ASTHENIA [None]
  - DEPRESSED MOOD [None]
  - DISTURBANCE IN ATTENTION [None]
  - HOMICIDAL IDEATION [None]
  - INSOMNIA [None]
  - OBSESSIVE THOUGHTS [None]
  - OBSESSIVE-COMPULSIVE DISORDER [None]
  - SUICIDAL IDEATION [None]
